FAERS Safety Report 8933981 (Version 1)
Quarter: 2012Q4

REPORT INFORMATION
  Report Type: 
  Country: US (occurrence: US)
  Receive Date: 20121129
  Receipt Date: 20121129
  Transmission Date: 20130627
  Serious: Yes (Hospitalization)
  Sender: FDA-Public Use
  Company Number: US-B.I. PHARMACEUTICALS,INC./RIDGEFIELD-2012-BP-26472BP

PATIENT
  Sex: Male

DRUGS (1)
  1. PRADAXA [Suspect]
     Indication: HEART VALVE REPLACEMENT
     Dosage: 300 mg
     Route: 048
     Dates: start: 20120428, end: 201208

REACTIONS (3)
  - Thrombosis [Recovered/Resolved]
  - Cardiac valve replacement complication [Recovered/Resolved]
  - Splenic vein thrombosis [Recovered/Resolved]
